FAERS Safety Report 9254427 (Version 1)
Quarter: 2013Q2

REPORT INFORMATION
  Report Type: Spontaneous
  Country: ES (occurrence: None)
  Receive Date: 20130419
  Receipt Date: 20130419
  Transmission Date: 20140414
  Serious: Yes (Death)
  Sender: FDA-Public Use
  Company Number: FK201301147

PATIENT
  Age: 3 Year
  Sex: Male
  Weight: 13 kg

DRUGS (7)
  1. TRANEXAMIC ACID [Suspect]
     Indication: CARDIOPULMONARY BYPASS
     Route: 040
  2. PROTAMINE (PROTAMINE) [Concomitant]
  3. FENTANYL (FENTANYL) [Concomitant]
  4. SEVOFLUORANE (SEVOFLURANE) [Concomitant]
  5. MIDAZOLAM (MIDAZOLAM) [Concomitant]
  6. CISATRACURIUM (CISATRACURIUM) [Concomitant]
  7. HEPARIN (HEPARIN) [Concomitant]

REACTIONS (4)
  - Atrial thrombosis [None]
  - Pulmonary embolism [None]
  - Pharyngeal disorder [None]
  - Haemorrhage [None]
